FAERS Safety Report 17768920 (Version 1)
Quarter: 2020Q2

REPORT INFORMATION
  Report Type: Spontaneous
  Country: US (occurrence: US)
  Receive Date: 20200512
  Receipt Date: 20200512
  Transmission Date: 20200714
  Serious: No
  Sender: FDA-Public Use
  Company Number: US-JNJFOC-20200411900

PATIENT
  Age: 33 Year
  Sex: Male
  Weight: 109.87 kg

DRUGS (1)
  1. MOTRIN [Suspect]
     Active Substance: IBUPROFEN
     Indication: HEADACHE
     Dosage: 4 PILLS A DAY DAY
     Route: 048
     Dates: start: 20200321

REACTIONS (3)
  - Headache [Unknown]
  - Dizziness [Unknown]
  - Product commingling [Unknown]

NARRATIVE: CASE EVENT DATE: 20200321
